FAERS Safety Report 7471904-0 (Version None)
Quarter: 2011Q2

REPORT INFORMATION
  Report Type: 
  Country: None (occurrence: None)
  Receive Date: 20110511
  Receipt Date: 20100708
  Transmission Date: 20111010
  Serious: No
  Sender: FDA-Public Use
  Company Number: A0869235A

PATIENT
  Age: 46 Year
  Sex: Female

DRUGS (3)
  1. TYKERB [Suspect]
     Indication: BRAIN NEOPLASM
     Dosage: 1250MG PER DAY
     Route: 048
     Dates: start: 20100628
  2. THYROID MEDICATION [Concomitant]
  3. XELODA [Concomitant]

REACTIONS (2)
  - DIZZINESS [None]
  - EAR DISCOMFORT [None]
